FAERS Safety Report 5315413-3 (Version None)
Quarter: 2007Q2

REPORT INFORMATION
  Report Type: 
  Country: None (occurrence: None)
  Receive Date: 20070503
  Receipt Date: 20070425
  Transmission Date: 20071010
  Serious: Yes (Other)
  Sender: FDA-Public Use
  Company Number: PHEH2007US04453

PATIENT
  Sex: Female

DRUGS (1)
  1. ZELNORM [Suspect]
     Indication: FLATULENCE
     Dosage: 6 MG, ONCE/SINGLE
     Dates: start: 20070301, end: 20070301

REACTIONS (5)
  - ANAEMIA [None]
  - ASTHENIA [None]
  - DIARRHOEA [None]
  - NAUSEA [None]
  - SKIN DISCOLOURATION [None]
